FAERS Safety Report 25915915 (Version 1)
Quarter: 2025Q4

REPORT INFORMATION
  Report Type: Report from Study
  Country: US (occurrence: US)
  Receive Date: 20251013
  Receipt Date: 20251013
  Transmission Date: 20260118
  Serious: Yes (Other)
  Sender: ABBVIE
  Company Number: US-ABBVIE-6500499

PATIENT
  Age: 76 Year
  Sex: Male

DRUGS (7)
  1. VENCLEXTA [Suspect]
     Active Substance: VENETOCLAX
     Indication: Chronic lymphocytic leukaemia
     Dosage: WEEK 1 STRENGTH: 100MG, LAST ADMIN 2025
     Route: 048
     Dates: start: 202501
  2. VENCLEXTA [Suspect]
     Active Substance: VENETOCLAX
     Indication: Chronic lymphocytic leukaemia
     Dosage: WEEK 2 STRENGTH: 100MG, FIRST ADMIN: 2025 LAST ADMIN 2025
     Route: 048
  3. VENCLEXTA [Suspect]
     Active Substance: VENETOCLAX
     Indication: Chronic lymphocytic leukaemia
     Dosage: WEEK 3 STRENGTH: 100MG, FIRST ADMIN: 2025 LAST ADMIN 2025
     Route: 048
  4. VENCLEXTA [Suspect]
     Active Substance: VENETOCLAX
     Indication: Chronic lymphocytic leukaemia
     Dosage: WEEK 4 STRENGTH: 100MG, FIRST ADMIN: 2025 LAST ADMIN 2025
     Route: 048
  5. VENCLEXTA [Suspect]
     Active Substance: VENETOCLAX
     Indication: Chronic lymphocytic leukaemia
     Dosage: WEEK 5 AND BEYOND, STRENGTH: 100MG, FIRST ADMIN: 2025 LAST ADMIN 2025
     Route: 048
  6. VENCLEXTA [Suspect]
     Active Substance: VENETOCLAX
     Indication: Chronic lymphocytic leukaemia
     Dosage: RESTARTED, STRENGTH: 100MG, FIRST ADMIN: 2025 LAST ADMIN 2025
     Route: 048
     Dates: start: 202506, end: 202509
  7. NYVEPRIA [Concomitant]
     Active Substance: PEGFILGRASTIM-APGF
     Indication: Product used for unknown indication
     Dosage: PFS

REACTIONS (2)
  - Neoplasm malignant [Unknown]
  - Malaise [Unknown]

NARRATIVE: CASE EVENT DATE: 20250101
